FAERS Safety Report 9771890 (Version 1)
Quarter: 2013Q3

REPORT INFORMATION
  Report Type: Spontaneous
  Country: CL (occurrence: None)
  Receive Date: 20130930
  Receipt Date: 20130930
  Transmission Date: 20140515
  Serious: Yes (Hospitalization)
  Sender: FDA-Public Use
  Company Number: CL-ALKEM-000121

PATIENT
  Age: 28 Year
  Sex: Male

DRUGS (3)
  1. MYCOPHENOLATE MOFETIL [Suspect]
     Indication: CHEMOTHERAPY
  2. TACROLIMUS [Suspect]
     Indication: CHEMOTHERAPY
  3. CYCLOSPORINE (CYCLOSPORINE) [Concomitant]

REACTIONS (26)
  - Thrombophlebitis [None]
  - Diarrhoea [None]
  - Histiocytosis haematophagic [None]
  - Splenomegaly [None]
  - Ascites [None]
  - Pleural effusion [None]
  - Gastrointestinal oedema [None]
  - Hypoalbuminaemia [None]
  - C-reactive protein increased [None]
  - Hypogammaglobulinaemia [None]
  - Kidney transplant rejection [None]
  - Pyrexia [None]
  - Pancytopenia [None]
  - Serum ferritin increased [None]
  - Renal function test abnormal [None]
  - Vomiting [None]
  - Muscle spasms [None]
  - Headache [None]
  - Abdominal pain [None]
  - Renal lymphocele [None]
  - Graft complication [None]
  - Metabolic acidosis [None]
  - Azotaemia [None]
  - Bone marrow failure [None]
  - Weight decreased [None]
  - Blood triglycerides increased [None]
